FAERS Safety Report 7267668-6 (Version None)
Quarter: 2011Q1

REPORT INFORMATION
  Report Type: 
  Country: None (occurrence: None)
  Receive Date: 20110201
  Receipt Date: 20110120
  Transmission Date: 20110831
  Serious: Yes (Death, Other)
  Sender: FDA-Public Use
  Company Number: DE-ROCHE-734628

PATIENT
  Sex: Female
  Weight: 57 kg

DRUGS (7)
  1. AVASTIN [Suspect]
     Route: 042
     Dates: start: 20100910, end: 20100924
  2. ALOXI [Concomitant]
     Route: 042
     Dates: start: 20100910
  3. MCP [Concomitant]
     Dates: start: 20100910
  4. DEXAMETHASONE [Concomitant]
     Dates: start: 20100910
  5. RANITIC [Concomitant]
     Route: 042
     Dates: start: 20100910
  6. PACLITAXEL [Concomitant]
     Route: 042
     Dates: start: 20100910
  7. TAVEGIL [Concomitant]
     Route: 042
     Dates: start: 20100910

REACTIONS (2)
  - NEOPLASM MALIGNANT [None]
  - WOUND DEHISCENCE [None]
